FAERS Safety Report 5596496-2 (Version None)
Quarter: 2007Q4

REPORT INFORMATION
  Report Type: 
  Country: None (occurrence: None)
  Receive Date: 20071219
  Receipt Date: 20071113
  Transmission Date: 20080405
  Serious: No
  Sender: FDA-Public Use
  Company Number: US-WYE-H01231607

PATIENT
  Age: 64 Year
  Sex: Male

DRUGS (1)
  1. TORISEL [Suspect]
     Dosage: ONE DOSE WEEKLY
     Dates: start: 20071105, end: 20071112

REACTIONS (1)
  - HAEMOLYTIC ANAEMIA [None]
